FAERS Safety Report 7323554-4 (Version None)
Quarter: 2011Q1

REPORT INFORMATION
  Report Type: 
  Country: None (occurrence: None)
  Receive Date: 20110301
  Receipt Date: 20110216
  Transmission Date: 20110831
  Serious: Yes (Death)
  Sender: FDA-Public Use
  Company Number: HU-ELI_LILLY_AND_COMPANY-HU201102004597

PATIENT
  Age: 63 Year
  Sex: Female

DRUGS (2)
  1. ZYPADHERA [Suspect]
     Dosage: 405 MG, MONTHLY (1/M)
     Route: 030
     Dates: end: 20101218
  2. ZYPADHERA [Suspect]
     Indication: SCHIZOPHRENIA
     Dosage: 300MG/2WEEKS
     Route: 030
     Dates: start: 20100912

REACTIONS (1)
  - NEOPLASM MALIGNANT [None]
